FAERS Safety Report 15337843 (Version 1)
Quarter: 2018Q3

REPORT INFORMATION
  Report Type: Spontaneous
  Country: US (occurrence: US)
  Receive Date: 20180827
  Receipt Date: 20180827
  Transmission Date: 20181010
  Serious: No
  Sender: FDA-Public Use
  Company Number: None

PATIENT
  Age: 45 Year
  Sex: Female
  Weight: 89.3 kg

DRUGS (2)
  1. TICAGRELOR. [Suspect]
     Active Substance: TICAGRELOR
     Indication: CORONARY ARTERIAL STENT INSERTION
     Route: 048
     Dates: start: 20180809, end: 20180809
  2. CARVEDILOL. [Concomitant]
     Active Substance: CARVEDILOL
     Dates: start: 20180809, end: 20180809

REACTIONS (1)
  - Cardiac telemetry abnormal [None]

NARRATIVE: CASE EVENT DATE: 20180809
